FAERS Safety Report 8954819 (Version 1)
Quarter: 2012Q4

REPORT INFORMATION
  Report Type: Spontaneous
  Country: US (occurrence: None)
  Receive Date: 20121204
  Receipt Date: 20121204
  Transmission Date: 20130627
  Serious: No
  Sender: FDA-Public Use
  Company Number: None

PATIENT
  Sex: Female
  Weight: 45.36 kg

DRUGS (1)
  1. SINGULAIR 5 MG GENERIC [Suspect]
     Indication: ALLERGIC RHINITIS
     Dosage: one  tablet every day oral
     Route: 048
     Dates: start: 20121001, end: 20121010

REACTIONS (2)
  - Aggression [None]
  - Mood swings [None]
